FAERS Safety Report 6166205-7 (Version None)
Quarter: 2009Q2

REPORT INFORMATION
  Report Type: 
  Country: None (occurrence: None)
  Receive Date: 20090424
  Receipt Date: 20090417
  Transmission Date: 20091009
  Serious: Yes (Hospitalization)
  Sender: FDA-Public Use
  Company Number: US-BIOGENIDEC-2009BI012184

PATIENT
  Age: 22 Year
  Sex: Female

DRUGS (3)
  1. AVONEX [Suspect]
     Indication: MULTIPLE SCLEROSIS
     Route: 030
     Dates: start: 20080901
  2. AVONEX [Suspect]
     Route: 030
     Dates: start: 20020901, end: 20030901
  3. AVONEX [Suspect]
     Route: 030
     Dates: start: 20030901, end: 20080501

REACTIONS (1)
  - TETHERED CORD SYNDROME [None]
